FAERS Safety Report 5520432-8 (Version None)
Quarter: 2007Q4

REPORT INFORMATION
  Report Type: 
  Country: None (occurrence: None)
  Receive Date: 20071119
  Receipt Date: 20071105
  Transmission Date: 20080405
  Serious: Yes (Life-Threatening, Other)
  Sender: FDA-Public Use
  Company Number: GB-PFIZER INC-2007022653

PATIENT
  Sex: Female
  Weight: 89 kg

DRUGS (6)
  1. CHAMPIX [Suspect]
     Indication: SMOKING CESSATION THERAPY
     Route: 048
  2. BUPRENORPHINE HCL [Concomitant]
     Route: 062
  3. FOLIC ACID [Concomitant]
     Route: 048
  4. PARACETAMOL [Concomitant]
  5. SERETIDE [Concomitant]
     Route: 055
  6. SPIRIVA [Concomitant]
     Route: 055

REACTIONS (8)
  - DISTURBANCE IN ATTENTION [None]
  - HALLUCINATION [None]
  - HEADACHE [None]
  - IMPAIRED DRIVING ABILITY [None]
  - IRRITABILITY [None]
  - MALAISE [None]
  - NAUSEA [None]
  - SUICIDAL BEHAVIOUR [None]
